FAERS Safety Report 17488907 (Version 2)
Quarter: 2020Q1

REPORT INFORMATION
  Report Type: Spontaneous
  Country: BR (occurrence: BR)
  Receive Date: 20200303
  Receipt Date: 20200305
  Transmission Date: 20200409
  Serious: No
  Sender: FDA-Public Use
  Company Number: BR-PFIZER INC-2020090703

PATIENT
  Age: 88 Year
  Sex: Female

DRUGS (2)
  1. FELDENE [Suspect]
     Active Substance: PIROXICAM
     Indication: TENDONITIS
  2. FELDENE [Suspect]
     Active Substance: PIROXICAM
     Indication: PAIN

REACTIONS (1)
  - No adverse event [Not Recovered/Not Resolved]
